FAERS Safety Report 4405563-8 (Version None)
Quarter: 2004Q3

REPORT INFORMATION
  Report Type: 
  Country: None (occurrence: None)
  Receive Date: 20040723
  Receipt Date: 20030930
  Transmission Date: 20050211
  Serious: No
  Sender: FDA-Public Use
  Company Number: US-GLAXOSMITHKLINE-A0428037A

PATIENT
  Age: 53 Year
  Sex: Female

DRUGS (9)
  1. AVANDIA [Suspect]
     Dosage: 4MG TWICE PER DAY
     Route: 048
  2. NORVASC [Concomitant]
  3. TOPROL-XL [Concomitant]
  4. LOTENSIN [Concomitant]
  5. LASIX [Concomitant]
  6. POTASSIUM [Concomitant]
  7. UNSPECIFIED MEDICATION [Concomitant]
  8. NEXIUM [Concomitant]
  9. SINGULAIR [Concomitant]

REACTIONS (4)
  - ASTHENIA [None]
  - DRUG INEFFECTIVE [None]
  - TREMOR [None]
  - VISION BLURRED [None]
